FAERS Safety Report 7118475-6 (Version None)
Quarter: 2010Q4

REPORT INFORMATION
  Report Type: 
  Country: None (occurrence: None)
  Receive Date: 20101121
  Receipt Date: 20090909
  Transmission Date: 20110411
  Serious: Yes (Other)
  Sender: FDA-Public Use
  Company Number: 2009BH013910

PATIENT
  Sex: Female

DRUGS (1)
  1. GAMMAGARD LIQUID [Suspect]
     Indication: PRIMARY IMMUNODEFICIENCY SYNDROME
     Dosage: 35 GM;EVERY 4 WK;IV
     Route: 042
     Dates: start: 20090724, end: 20090801

REACTIONS (3)
  - DIARRHOEA [None]
  - HEADACHE [None]
  - NAUSEA [None]
